FAERS Safety Report 12530165 (Version 2)
Quarter: 2016Q3

REPORT INFORMATION
  Report Type: Spontaneous
  Country: US (occurrence: US)
  Receive Date: 20160706
  Receipt Date: 20160812
  Transmission Date: 20161109
  Serious: No
  Sender: FDA-Public Use
  Company Number: US-PFIZER INC-2016318442

PATIENT
  Age: 70 Year
  Sex: Female

DRUGS (1)
  1. VANCOMYCIN HCL [Suspect]
     Active Substance: VANCOMYCIN HYDROCHLORIDE
     Dosage: UNK

REACTIONS (5)
  - Dizziness [Unknown]
  - Headache [Unknown]
  - Asthenia [Unknown]
  - Drug intolerance [Unknown]
  - Drug hypersensitivity [Unknown]
